FAERS Safety Report 7680305-1 (Version None)
Quarter: 2011Q3

REPORT INFORMATION
  Report Type: 
  Country: None (occurrence: None)
  Receive Date: 20110812
  Receipt Date: 20101216
  Transmission Date: 20111222
  Serious: Yes (Hospitalization)
  Sender: FDA-Public Use
  Company Number: US-GLAXOSMITHKLINE-A0903562A

PATIENT
  Age: 61 Year
  Sex: Male

DRUGS (1)
  1. AVANDIA [Suspect]
     Indication: DIABETES MELLITUS
     Dosage: 4MG PER DAY
     Route: 048
     Dates: start: 20010530, end: 20071101

REACTIONS (11)
  - BLOOD PRESSURE INCREASED [None]
  - DYSPNOEA [None]
  - WEIGHT INCREASED [None]
  - NAUSEA [None]
  - OEDEMA [None]
  - ABDOMINAL DISTENSION [None]
  - FEELING ABNORMAL [None]
  - FATIGUE [None]
  - CORONARY ARTERY BYPASS [None]
  - CARDIAC DISORDER [None]
  - PAIN [None]
